FAERS Safety Report 6007391-9 (Version None)
Quarter: 2008Q4

REPORT INFORMATION
  Report Type: 
  Country: None (occurrence: None)
  Receive Date: 20081217
  Receipt Date: 20080409
  Transmission Date: 20090506
  Serious: No
  Sender: FDA-Public Use
  Company Number: US-ASTRAZENECA-2008UW07092

PATIENT
  Age: 59 Year
  Sex: Female
  Weight: 56.7 kg

DRUGS (2)
  1. CRESTOR [Suspect]
     Indication: BLOOD CHOLESTEROL INCREASED
     Route: 048
     Dates: start: 20080331
  2. ACTINAL [Concomitant]

REACTIONS (3)
  - HEADACHE [None]
  - SWELLING [None]
  - WEIGHT INCREASED [None]
